FAERS Safety Report 23139885 (Version 1)
Quarter: 2023Q4

REPORT INFORMATION
  Report Type: Spontaneous
  Country: US (occurrence: US)
  Receive Date: 20231102
  Receipt Date: 20231102
  Transmission Date: 20240109
  Serious: No
  Sender: FDA-Public Use
  Company Number: US-BAYER-2023A153279

PATIENT
  Age: 35 Year
  Sex: Male

DRUGS (3)
  1. KOVALTRY [Suspect]
     Active Substance: ANTIHEMOPHILIC FACTOR, HUMAN RECOMBINANT
     Dosage: 2000 IU
  2. KOVALTRY [Suspect]
     Active Substance: ANTIHEMOPHILIC FACTOR, HUMAN RECOMBINANT
     Dosage: 4000 IU
  3. PREDNISONE [Concomitant]
     Active Substance: PREDNISONE
     Indication: Hypersensitivity

REACTIONS (2)
  - COVID-19 [None]
  - Hypersensitivity [None]

NARRATIVE: CASE EVENT DATE: 20231008
